FAERS Safety Report 15843286 (Version 1)
Quarter: 2019Q1

REPORT INFORMATION
  Report Type: Spontaneous
  Country: PT (occurrence: PT)
  Receive Date: 20190118
  Receipt Date: 20190118
  Transmission Date: 20190417
  Serious: Yes (Hospitalization, Other)
  Sender: FDA-Public Use
  Company Number: PT-SANIK-2019SA009604AA

PATIENT
  Age: 53 Year
  Sex: Female

DRUGS (1)
  1. CLOPIDOGREL BISULFATE. [Suspect]
     Active Substance: CLOPIDOGREL BISULFATE
     Dosage: UNK, UNK
     Route: 065

REACTIONS (11)
  - Back pain [Unknown]
  - Haemolytic anaemia [Recovering/Resolving]
  - Paroxysmal nocturnal haemoglobinuria [Recovered/Resolved]
  - Leukocytosis [Unknown]
  - Poikilocytosis [Unknown]
  - Nausea [Unknown]
  - Headache [Unknown]
  - Asthenia [Unknown]
  - Anisocytosis [Unknown]
  - Polycythaemia [Unknown]
  - Chromaturia [Unknown]
